FAERS Safety Report 7335006-6 (Version None)
Quarter: 2011Q1

REPORT INFORMATION
  Report Type: 
  Country: None (occurrence: None)
  Receive Date: 20110307
  Receipt Date: 20110228
  Transmission Date: 20110831
  Serious: Yes (Other)
  Sender: FDA-Public Use
  Company Number: ES-ROCHE-762888

PATIENT

DRUGS (2)
  1. BEVACIZUMAB [Suspect]
     Dosage: ON DAY 1 OF THE 1ST WEEK
     Route: 065
  2. SORAFENIB [Suspect]
     Dosage: DOSE AND FREQUENCY: 200MG TWICE DAILY ON DAYS 1 TO 5 OF EACH WEEK
     Route: 065

REACTIONS (3)
  - PALMAR-PLANTAR ERYTHRODYSAESTHESIA SYNDROME [None]
  - HYPERTENSION [None]
  - ASTHENIA [None]
